FAERS Safety Report 7958140-6 (Version None)
Quarter: 2011Q4

REPORT INFORMATION
  Report Type: 
  Country: None (occurrence: None)
  Receive Date: 20111201
  Receipt Date: 20111115
  Transmission Date: 20120403
  Serious: Yes (Hospitalization)
  Sender: FDA-Public Use
  Company Number: 2011SP003931

PATIENT
  Age: 88 Year
  Sex: Female

DRUGS (9)
  1. MONTELUKAST SODIUM [Concomitant]
  2. LASIX [Concomitant]
  3. ALVESCO [Suspect]
     Indication: ASTHMA
     Dosage: 400 MG; BID; INHALATION
     Route: 055
     Dates: start: 20101027
  4. HOKUNALIN [Concomitant]
  5. VERAPAMIL HYDROCHLORIDE [Concomitant]
  6. ONON [Concomitant]
  7. NITRODERM [Concomitant]
  8. HYZAAR [Concomitant]
  9. WARFARIN SODIUM [Concomitant]

REACTIONS (1)
  - CARDIAC FAILURE CHRONIC [None]
